FAERS Safety Report 24313384 (Version 2)
Quarter: 2024Q3

REPORT INFORMATION
  Report Type: Spontaneous
  Country: CN (occurrence: CN)
  Receive Date: 20240912
  Receipt Date: 20240918
  Transmission Date: 20241016
  Serious: Yes (Hospitalization)
  Sender: STRIDES
  Company Number: None

PATIENT
  Age: 55 Year
  Sex: Male

DRUGS (9)
  1. PREDNISOLONE [Suspect]
     Active Substance: PREDNISOLONE
     Indication: Prophylaxis against transplant rejection
     Dosage: 4 MILLIGRAM, BID
     Route: 065
  2. MYCOPHENOLATE MOFETIL [Suspect]
     Active Substance: MYCOPHENOLATE MOFETIL
     Indication: Prophylaxis against transplant rejection
     Dosage: 0.5 GRAM, BID
     Route: 065
  3. TACROLIMUS [Suspect]
     Active Substance: TACROLIMUS
     Indication: Prophylaxis against transplant rejection
     Dosage: 1 MILLIGRAM, BID
     Route: 065
  4. LINEZOLID [Concomitant]
     Active Substance: LINEZOLID
     Indication: Evidence based treatment
     Dosage: 600 MILLIGRAM, EVERY 12 HRS
     Route: 065
  5. CEFTRIAXONE [Concomitant]
     Active Substance: CEFTRIAXONE\CEFTRIAXONE SODIUM
     Indication: Evidence based treatment
     Dosage: 2 GRAM, QD
     Route: 065
  6. TERBINAFINE [Concomitant]
     Active Substance: TERBINAFINE
     Indication: Evidence based treatment
     Dosage: UNK
     Route: 065
  7. MUPIROCIN [Concomitant]
     Active Substance: MUPIROCIN
     Indication: Evidence based treatment
     Dosage: UNK
     Route: 065
  8. ITRACONAZOLE [Concomitant]
     Active Substance: ITRACONAZOLE
     Indication: Evidence based treatment
     Dosage: UNK
     Route: 065
  9. FUROSEMIDE [Concomitant]
     Active Substance: FUROSEMIDE
     Indication: Product used for unknown indication
     Dosage: UNK
     Route: 065

REACTIONS (7)
  - Pleural effusion [Recovered/Resolved]
  - Pseudomonas infection [Recovered/Resolved]
  - Fungal skin infection [Recovered/Resolved]
  - Trichophytosis [Recovered/Resolved]
  - Disseminated mycobacterium avium complex infection [Recovered/Resolved]
  - Staphylococcal infection [Recovered/Resolved]
  - Atypical mycobacterial infection [Recovered/Resolved]
